FAERS Safety Report 10091154 (Version 2)
Quarter: 2015Q3

REPORT INFORMATION
  Report Type: Spontaneous
  Country: US (occurrence: US)
  Receive Date: 20140421
  Receipt Date: 20150812
  Transmission Date: 20151125
  Serious: No
  Sender: FDA-Public Use
  Company Number: US-GILEAD-2012-0062418

PATIENT
  Age: 60 Year
  Sex: Female

DRUGS (13)
  1. EPOPROSTENOL. [Concomitant]
     Active Substance: EPOPROSTENOL
  2. WARFARIN [Concomitant]
     Active Substance: WARFARIN
  3. FUROSEMIDE. [Concomitant]
     Active Substance: FUROSEMIDE
  4. SIMVASTATIN. [Concomitant]
     Active Substance: SIMVASTATIN
  5. NORCO [Concomitant]
     Active Substance: ACETAMINOPHEN\HYDROCODONE BITARTRATE
  6. CALCIUM/VITAMIN D                  /00188401/ [Concomitant]
  7. GABAPENTIN. [Concomitant]
     Active Substance: GABAPENTIN
  8. SILDENAFIL. [Concomitant]
     Active Substance: SILDENAFIL
  9. DIGOXIN. [Concomitant]
     Active Substance: DIGOXIN
  10. LETAIRIS [Suspect]
     Active Substance: AMBRISENTAN
     Indication: PULMONARY HYPERTENSION
     Dosage: 5 MG, UNK
     Route: 048
     Dates: start: 20120906
  11. ALENDRONATE [Concomitant]
     Active Substance: ALENDRONATE SODIUM
  12. FAMOTIDINE. [Concomitant]
     Active Substance: FAMOTIDINE
  13. DOCUSATE SODIUM. [Concomitant]
     Active Substance: DOCUSATE SODIUM

REACTIONS (1)
  - Headache [Unknown]
